FAERS Safety Report 11392166 (Version 1)
Quarter: 2015Q3

REPORT INFORMATION
  Report Type: Spontaneous
  Country: GB (occurrence: None)
  Receive Date: 20150814
  Receipt Date: 20150814
  Transmission Date: 20151125
  Serious: Yes (Hospitalization, Other)
  Sender: FDA-Public Use
  Company Number: 2015RR-101433

PATIENT
  Age: 51 Year
  Sex: Female
  Weight: 62 kg

DRUGS (10)
  1. CO-DYDRAMOL (DIHYDROCODEINE TARTRATE/PARACETAMOL) [Concomitant]
  2. PROPRANOLOL [Concomitant]
     Active Substance: PROPRANOLOL\PROPRANOLOL HYDROCHLORIDE
  3. RIZATRIPTAN. [Concomitant]
     Active Substance: RIZATRIPTAN
  4. SUMATRIPTAN (SUMATRIPTAN) SOLUTION FOR INJECTION [Suspect]
     Active Substance: SUMATRIPTAN
     Indication: PRODUCT USED FOR UNKNOWN INDICATION
     Route: 058
     Dates: start: 20150629
  5. AMOXICILLIN. [Concomitant]
     Active Substance: AMOXICILLIN
  6. EPADERM (EMUSLIFYING WAX/PARAFFIN SFOT YELLOW) [Concomitant]
  7. LANSOPRAZOLE. [Concomitant]
     Active Substance: LANSOPRAZOLE
  8. BETAMETHASONE VALERATE. [Concomitant]
     Active Substance: BETAMETHASONE VALERATE
  9. PROCHLORPERAZINE. [Concomitant]
     Active Substance: PROCHLORPERAZINE
  10. NAPROXEN. [Concomitant]
     Active Substance: NAPROXEN

REACTIONS (4)
  - Rash macular [None]
  - Discomfort [None]
  - Hypersensitivity [None]
  - Pharyngeal oedema [None]

NARRATIVE: CASE EVENT DATE: 20150721
